FAERS Safety Report 14814355 (Version 1)
Quarter: 2018Q2

REPORT INFORMATION
  Report Type: Spontaneous
  Country: DE (occurrence: DE)
  Receive Date: 20180426
  Receipt Date: 20180426
  Transmission Date: 20180711
  Serious: Yes (Hospitalization)
  Sender: FDA-Public Use
  Company Number: IND-DE-009507513-1804DEU010081

PATIENT
  Age: 73 Year
  Sex: Male

DRUGS (1)
  1. ETORICOXIB [Suspect]
     Active Substance: ETORICOXIB
     Indication: SPINAL PAIN
     Route: 048
     Dates: start: 201711

REACTIONS (1)
  - Hepatitis cholestatic [Recovering/Resolving]

NARRATIVE: CASE EVENT DATE: 20180312
